FAERS Safety Report 25033420 (Version 7)
Quarter: 2025Q2

REPORT INFORMATION
  Report Type: Report from Study
  Country: CA (occurrence: CA)
  Receive Date: 20250303
  Receipt Date: 20250616
  Transmission Date: 20250717
  Serious: Yes (Hospitalization)
  Sender: JOHNSON AND JOHNSON
  Company Number: CA-JNJFOC-20250281273

PATIENT
  Age: 45 Year
  Sex: Female

DRUGS (5)
  1. REMICADE [Suspect]
     Active Substance: INFLIXIMAB
     Indication: Crohn^s disease
     Route: 041
     Dates: start: 20150317
  2. REMICADE [Suspect]
     Active Substance: INFLIXIMAB
     Route: 041
     Dates: start: 20150317
  3. REMICADE [Suspect]
     Active Substance: INFLIXIMAB
     Route: 041
     Dates: start: 20161123
  4. REMICADE [Suspect]
     Active Substance: INFLIXIMAB
     Route: 041
     Dates: start: 20110118
  5. REMICADE [Suspect]
     Active Substance: INFLIXIMAB
     Route: 041
     Dates: start: 20150317

REACTIONS (9)
  - Salmonella bacteraemia [Not Recovered/Not Resolved]
  - Hospitalisation [Unknown]
  - Weight decreased [Unknown]
  - Blood potassium decreased [Unknown]
  - Fatigue [Not Recovered/Not Resolved]
  - Hypertension [Recovering/Resolving]
  - General physical health deterioration [Unknown]
  - Abdominal pain [Unknown]
  - Frequent bowel movements [Not Recovered/Not Resolved]

NARRATIVE: CASE EVENT DATE: 20250101
